FAERS Safety Report 19646629 (Version 2)
Quarter: 2021Q3

REPORT INFORMATION
  Report Type: Report from Study
  Country: JP (occurrence: JP)
  Receive Date: 20210802
  Receipt Date: 20210902
  Transmission Date: 20211014
  Serious: Yes (Death, Hospitalization)
  Sender: FDA-Public Use
  Company Number: JP-MYLANLABS-2021M1046335

PATIENT
  Age: 77 Year
  Sex: Male

DRUGS (4)
  1. CYCLOPHOSPHAMIDE. [Suspect]
     Active Substance: CYCLOPHOSPHAMIDE
     Indication: GLOMERULONEPHRITIS PROLIFERATIVE
     Route: 065
  2. PREDNISOLONE. [Suspect]
     Active Substance: PREDNISOLONE
     Indication: GLOMERULONEPHRITIS PROLIFERATIVE
     Route: 065
  3. CYCLOPHOSPHAMIDE. [Suspect]
     Active Substance: CYCLOPHOSPHAMIDE
     Indication: MEMBRANOUS-LIKE GLOMERULOPATHY WITH MASKED IGG-KAPPA DEPOSITS
  4. PREDNISOLONE. [Suspect]
     Active Substance: PREDNISOLONE
     Indication: MEMBRANOUS-LIKE GLOMERULOPATHY WITH MASKED IGG-KAPPA DEPOSITS

REACTIONS (2)
  - Interstitial lung disease [Fatal]
  - Drug ineffective [Unknown]
